FAERS Safety Report 17798238 (Version 1)
Quarter: 2020Q2

REPORT INFORMATION
  Report Type: Spontaneous
  Country: LV (occurrence: LV)
  Receive Date: 20200518
  Receipt Date: 20200518
  Transmission Date: 20200714
  Serious: Yes (Other)
  Sender: FDA-Public Use
  Company Number: LV-TEVA-2020-LV-1235930

PATIENT
  Age: 49 Year
  Sex: Male
  Weight: 83 kg

DRUGS (3)
  1. LOZAP (LOSARTAN POTASSIUM) [Suspect]
     Active Substance: LOSARTAN POTASSIUM
     Indication: HYPERTENSION
     Dosage: 50 MG
     Route: 048
     Dates: start: 20200425, end: 20200429
  2. NEBIVOLOL ACTAVIS 5 MG TABLETES [Suspect]
     Active Substance: NEBIVOLOL
     Indication: HEART RATE INCREASED
     Dosage: 5 MG
     Route: 048
     Dates: start: 20200425, end: 20200429
  3. NEBIVOLOL ACTAVIS 5 MG TABLETES [Suspect]
     Active Substance: NEBIVOLOL
     Indication: HYPERTENSION

REACTIONS (3)
  - Face oedema [Recovering/Resolving]
  - Pruritus [Recovering/Resolving]
  - Eye pruritus [Recovering/Resolving]

NARRATIVE: CASE EVENT DATE: 20200425
